FAERS Safety Report 9752961 (Version 2)
Quarter: 2014Q2

REPORT INFORMATION
  Report Type: Spontaneous
  Country: BR (occurrence: BR)
  Receive Date: 20131213
  Receipt Date: 20140404
  Transmission Date: 20141212
  Serious: Yes (Hospitalization, Other)
  Sender: FDA-Public Use
  Company Number: BR-ASTRAZENECA-2013SE90165

PATIENT
  Age: 61 Year
  Sex: Female
  Weight: 89 kg

DRUGS (11)
  1. ATACAND [Suspect]
     Indication: HYPERTENSION
     Route: 048
     Dates: start: 2009
  2. CRESTOR [Suspect]
     Indication: BLOOD CHOLESTEROL INCREASED
     Route: 048
     Dates: start: 2009, end: 2012
  3. CRESTOR [Suspect]
     Indication: BLOOD CHOLESTEROL INCREASED
     Route: 048
     Dates: start: 201307
  4. BRILINTA [Suspect]
     Indication: ANTIPLATELET THERAPY
     Route: 048
     Dates: start: 201311
  5. AAS INFANTIL [Concomitant]
     Route: 048
  6. GALVUS MET [Concomitant]
     Indication: DIABETES MELLITUS
     Dosage: 50MG /1000MG, TWO TIMES A DAY
     Route: 048
  7. DIAMICRON [Concomitant]
     Indication: DIABETES MELLITUS
     Route: 048
  8. VICTOZA [Concomitant]
     Indication: DIABETES MELLITUS
     Route: 058
  9. PURAN T4 [Concomitant]
     Indication: HYPOTHYROIDISM
     Route: 048
  10. CONCOR [Concomitant]
     Indication: HYPERTENSION
     Route: 048
  11. CEBRALAT [Concomitant]

REACTIONS (3)
  - Aneurysm [Recovered/Resolved]
  - Blood cholesterol increased [Not Recovered/Not Resolved]
  - Off label use [Not Recovered/Not Resolved]
